FAERS Safety Report 7443722-0 (Version None)
Quarter: 2011Q2

REPORT INFORMATION
  Report Type: 
  Country: None (occurrence: None)
  Receive Date: 20110428
  Receipt Date: 20110420
  Transmission Date: 20111010
  Serious: Yes (Death, Life-Threatening, Hospitalization)
  Sender: FDA-Public Use
  Company Number: US-GILEAD-2010-0034721

PATIENT
  Sex: Female
  Weight: 60.382 kg

DRUGS (22)
  1. XOPENEX [Concomitant]
     Indication: DYSPNOEA
     Dates: start: 20100101, end: 20101205
  2. ALENDRONATE SODIUM [Concomitant]
     Indication: OSTEOPENIA
     Dates: start: 20050101, end: 20101205
  3. AMBRISENTAN [Suspect]
     Indication: IDIOPATHIC PULMONARY FIBROSIS
     Route: 048
     Dates: start: 20100609
  4. OXYGEN [Concomitant]
     Dates: start: 20101030, end: 20101203
  5. SYNTHROID [Concomitant]
     Indication: HYPOTHYROIDISM
     Dates: start: 20020101, end: 20101222
  6. OMEGA 3 FATTY ACID [Concomitant]
     Indication: MEDICAL DIET
     Dates: start: 20080101, end: 20101201
  7. ALBUTEROL [Concomitant]
     Indication: IDIOPATHIC PULMONARY FIBROSIS
     Dates: start: 20101213, end: 20110103
  8. PREDNISONE [Concomitant]
     Indication: COUGH
     Dates: start: 20101030, end: 20101203
  9. SIMVASTATIN [Concomitant]
     Indication: HYPERCHOLESTEROLAEMIA
     Dates: start: 20080101, end: 20101222
  10. COENZYME Q10 [Concomitant]
     Indication: MEDICAL DIET
     Dates: start: 20080101, end: 20101201
  11. SYMBICORT [Concomitant]
     Indication: DYSPNOEA EXERTIONAL
     Dates: start: 20101029, end: 20101201
  12. OMEPRAZOLE [Concomitant]
     Indication: GASTROOESOPHAGEAL REFLUX PROPHYLAXIS
     Dates: start: 20100322, end: 20101201
  13. VITAMIN D [Concomitant]
     Indication: OSTEOPENIA
     Dates: start: 20050101, end: 20101205
  14. IPRATROPIUM BROMIDE [Concomitant]
     Indication: IDIOPATHIC PULMONARY FIBROSIS
     Dates: start: 20101213, end: 20110103
  15. ZYRTEC [Concomitant]
     Indication: SEASONAL ALLERGY
     Dates: start: 20100510, end: 20101201
  16. LEVAQUIN [Concomitant]
     Indication: IDIOPATHIC PULMONARY FIBROSIS
     Dates: start: 20101213, end: 20101201
  17. IBANRDONATE SODIUM [Concomitant]
     Dates: start: 20101212, end: 20101212
  18. CALCIUM/MAGNESIUM COMBINATION [Concomitant]
     Indication: MEDICAL DIET
     Dates: start: 20020101, end: 20101201
  19. AMBRISENTAN [Suspect]
     Route: 048
     Dates: start: 20100525, end: 20100608
  20. OXYGEN [Concomitant]
     Indication: COUGH
     Dates: start: 20101203, end: 20110103
  21. FLAX SEED OIL [Concomitant]
     Indication: CONSTIPATION
     Dates: start: 20101027, end: 20101201
  22. IPRATROPIUM BROMIDE [Concomitant]
     Dates: start: 20101205, end: 20101206

REACTIONS (3)
  - PNEUMOTHORAX [None]
  - IDIOPATHIC PULMONARY FIBROSIS [None]
  - PULSELESS ELECTRICAL ACTIVITY [None]
